FAERS Safety Report 7380393-6 (Version None)
Quarter: 2011Q1

REPORT INFORMATION
  Report Type: 
  Country: None (occurrence: None)
  Receive Date: 20110329
  Receipt Date: 20110318
  Transmission Date: 20110831
  Serious: Yes (Life-Threatening, Hospitalization)
  Sender: FDA-Public Use
  Company Number: US-ROCHE-766484

PATIENT
  Sex: Female

DRUGS (4)
  1. XELODA [Suspect]
     Route: 048
     Dates: start: 20101029
  2. TYKERB [Suspect]
     Indication: BREAST CANCER
     Route: 048
     Dates: start: 20101029
  3. TYKERB [Suspect]
     Route: 048
  4. XELODA [Suspect]
     Route: 048

REACTIONS (2)
  - PANCREATITIS [None]
  - DIARRHOEA [None]
